FAERS Safety Report 6604091-9 (Version None)
Quarter: 2010Q1

REPORT INFORMATION
  Report Type: 
  Country: None (occurrence: None)
  Receive Date: 20100226
  Receipt Date: 20090526
  Transmission Date: 20100710
  Serious: No
  Sender: FDA-Public Use
  Company Number: A0784646A

PATIENT
  Age: 15 Year
  Sex: Female
  Weight: 94.3 kg

DRUGS (3)
  1. LAMICTAL CD [Suspect]
     Indication: BIPOLAR DISORDER
     Dosage: 50MGD PER DAY
     Route: 048
  2. SEROQUEL [Concomitant]
  3. TOPAMAX [Concomitant]

REACTIONS (2)
  - NAUSEA [None]
  - RASH [None]
